FAERS Safety Report 10470187 (Version 1)
Quarter: 2014Q3

REPORT INFORMATION
  Report Type: Spontaneous
  Country: US (occurrence: None)
  Receive Date: 20140922
  Receipt Date: 20140922
  Transmission Date: 20150326
  Serious: No
  Sender: FDA-Public Use
  Company Number: None

PATIENT
  Age: 65 Year
  Sex: Male
  Weight: 108.5 kg

DRUGS (1)
  1. AMPHOTERICIN B. [Suspect]
     Active Substance: AMPHOTERICIN B
     Indication: MENINGITIS
     Route: 042
     Dates: start: 20140911, end: 20140911

REACTIONS (8)
  - Nausea [None]
  - Vomiting [None]
  - Tachycardia [None]
  - Dyspnoea [None]
  - Hypertension [None]
  - Chills [None]
  - Cough [None]
  - Wheezing [None]

NARRATIVE: CASE EVENT DATE: 20140912
